FAERS Safety Report 9078238 (Version 1)
Quarter: 2013Q1

REPORT INFORMATION
  Report Type: Spontaneous
  Country: US (occurrence: US)
  Receive Date: 20130130
  Receipt Date: 20130130
  Transmission Date: 20140127
  Serious: No
  Sender: FDA-Public Use
  Company Number: US-ABBOTT-12P-163-0957151-00

PATIENT
  Age: 56 None
  Sex: Female
  Weight: 60.38 kg

DRUGS (1)
  1. HUMIRA 40 MG/0.8 ML PEN [Suspect]
     Indication: CROHN^S DISEASE
     Dates: start: 201012

REACTIONS (5)
  - Device malfunction [Unknown]
  - Incorrect dose administered [Unknown]
  - Injection site bruising [Not Recovered/Not Resolved]
  - Injection site urticaria [Not Recovered/Not Resolved]
  - Injection site urticaria [Unknown]
